FAERS Safety Report 4647387-2 (Version None)
Quarter: 2005Q2

REPORT INFORMATION
  Report Type: 
  Country: None (occurrence: None)
  Receive Date: 20050427
  Receipt Date: 20050427
  Transmission Date: 20051028
  Serious: Yes (Hospitalization)
  Sender: FDA-Public Use
  Company Number: None

PATIENT
  Sex: Male
  Weight: 91.6266 kg

DRUGS (21)
  1. ZOSYN [Suspect]
     Indication: CHOLECYSTITIS
     Dosage: Q6H INTRAVENOUS
     Route: 042
     Dates: start: 20050125, end: 20050128
  2. ASPIRIN [Concomitant]
  3. ACETATE [Concomitant]
  4. CLOPIDOGREL BISULFATE [Concomitant]
  5. CALCIUM ACETATE [Concomitant]
  6. FELODIPINE [Concomitant]
  7. FERROUS SULFATE TAB [Concomitant]
  8. FUROSEMIDE [Concomitant]
  9. GABAPENTIN [Concomitant]
  10. GLIPIZIDE [Concomitant]
  11. HYDRALAZINE [Concomitant]
  12. HUMULIN N [Concomitant]
  13. HUMULIN R [Concomitant]
  14. ISOSORBIDE MONONITRATE [Concomitant]
  15. METOPROLOL TARTRATE [Concomitant]
  16. OMEPRAZOLE [Concomitant]
  17. OXYCODONE AND ACETAMINOPHEN [Concomitant]
  18. PREDNISONE [Concomitant]
  19. SENNOSIDES [Concomitant]
  20. SIMVASTATIN [Concomitant]
  21. TEMAZEPAM [Concomitant]

REACTIONS (1)
  - HEPATITIS [None]
